FAERS Safety Report 9082945 (Version 1)
Quarter: 2013Q1

REPORT INFORMATION
  Report Type: Spontaneous
  Country: US (occurrence: US)
  Receive Date: 20130130
  Receipt Date: 20130130
  Transmission Date: 20140127
  Serious: No
  Sender: FDA-Public Use
  Company Number: CHPA2012US011078

PATIENT
  Sex: Female

DRUGS (1)
  1. LAMISIL AT CONTINUOUS SPRAY [Suspect]
     Dosage: UNK, A FEW DAYS AT A TIME
     Route: 061

REACTIONS (5)
  - No adverse event [Unknown]
  - Incorrect drug administration duration [Unknown]
  - Product quality issue [None]
  - Device malfunction [None]
  - Product label issue [None]
